FAERS Safety Report 5725386-7 (Version None)
Quarter: 2008Q2

REPORT INFORMATION
  Report Type: 
  Country: None (occurrence: None)
  Receive Date: 20080501
  Receipt Date: 20080421
  Transmission Date: 20081010
  Serious: Yes (Other)
  Sender: FDA-Public Use
  Company Number: US-PFIZER INC-2006124623

PATIENT
  Sex: Male
  Weight: 120.2 kg

DRUGS (2)
  1. CELEBREX [Suspect]
     Indication: MUSCULOSKELETAL PAIN
  2. CELEBREX [Suspect]
     Indication: BACK PAIN

REACTIONS (3)
  - CHEST PAIN [None]
  - HYPERTENSION [None]
  - RENAL DISORDER [None]
